FAERS Safety Report 5032218-1 (Version None)
Quarter: 2006Q2

REPORT INFORMATION
  Report Type: 
  Country: None (occurrence: None)
  Receive Date: 20060619
  Receipt Date: 20060608
  Transmission Date: 20061013
  Serious: No
  Sender: FDA-Public Use
  Company Number: HQWYE059209JUN06

PATIENT

DRUGS (1)
  1. TYGACIL [Suspect]
     Dosage: INTRAVENOUS
     Route: 042
     Dates: start: 20060607

REACTIONS (1)
  - HYPOTHERMIA [None]
